FAERS Safety Report 5893138-3 (Version None)
Quarter: 2008Q3

REPORT INFORMATION
  Report Type: 
  Country: None (occurrence: None)
  Receive Date: 20080923
  Receipt Date: 20071114
  Transmission Date: 20090109
  Serious: No
  Sender: FDA-Public Use
  Company Number: US-ASTRAZENECA-2007UW20068

PATIENT
  Age: 66 Year
  Sex: Female
  Weight: 76.2 kg

DRUGS (8)
  1. SEROQUEL [Suspect]
     Indication: OBSESSIVE-COMPULSIVE DISORDER
     Route: 048
  2. SEROQUEL [Suspect]
     Indication: BIPOLAR DISORDER
     Route: 048
  3. SEROQUEL [Suspect]
     Route: 048
  4. SEROQUEL [Suspect]
     Route: 048
  5. LITHIUM CARBONATE [Concomitant]
  6. LIPITOR [Concomitant]
  7. NEURONTIN [Concomitant]
  8. PREVACID [Concomitant]

REACTIONS (4)
  - DEPRESSED MOOD [None]
  - PANIC ATTACK [None]
  - SOMNOLENCE [None]
  - WEIGHT INCREASED [None]
